FAERS Safety Report 11390162 (Version 1)
Quarter: 2015Q3

REPORT INFORMATION
  Report Type: Spontaneous
  Country: US (occurrence: None)
  Receive Date: 20150814
  Receipt Date: 20150814
  Transmission Date: 20151125
  Serious: Yes (Hospitalization)
  Sender: FDA-Public Use
  Company Number: None

PATIENT
  Age: 61 Year
  Sex: Male

DRUGS (1)
  1. HARVONI [Suspect]
     Active Substance: LEDIPASVIR\SOFOSBUVIR
     Indication: HEPATITIS C
     Route: 048
     Dates: start: 20150731

REACTIONS (7)
  - Pain [None]
  - Chest discomfort [None]
  - Dizziness [None]
  - Back pain [None]
  - Atrial fibrillation [None]
  - Blood pressure increased [None]
  - Neck pain [None]

NARRATIVE: CASE EVENT DATE: 20150806
